FAERS Safety Report 16582820 (Version 1)
Quarter: 2019Q3

REPORT INFORMATION
  Report Type: Report from Study
  Country: ES (occurrence: ES)
  Receive Date: 20190717
  Receipt Date: 20190717
  Transmission Date: 20191004
  Serious: Yes (Other)
  Sender: FDA-Public Use
  Company Number: ES-MYLANLABS-2019M1066367

PATIENT
  Age: 66 Year
  Sex: Male

DRUGS (6)
  1. METHOTREXATE. [Suspect]
     Active Substance: METHOTREXATE
     Indication: HIV INFECTION
  2. EFALIZUMAB [Suspect]
     Active Substance: EFALIZUMAB
     Indication: PSORIATIC ARTHROPATHY
     Route: 065
  3. EFALIZUMAB [Suspect]
     Active Substance: EFALIZUMAB
     Indication: HIV INFECTION
  4. ETANERCEPT [Suspect]
     Active Substance: ETANERCEPT
     Indication: HIV INFECTION
  5. ETANERCEPT [Suspect]
     Active Substance: ETANERCEPT
     Indication: PSORIATIC ARTHROPATHY
     Route: 065
  6. METHOTREXATE. [Suspect]
     Active Substance: METHOTREXATE
     Indication: PSORIATIC ARTHROPATHY
     Route: 065

REACTIONS (3)
  - Prostate cancer [Unknown]
  - Transaminases increased [Unknown]
  - Oesophageal candidiasis [Unknown]
